FAERS Safety Report 10494377 (Version 4)
Quarter: 2015Q4

REPORT INFORMATION
  Report Type: Spontaneous
  Country: US (occurrence: US)
  Receive Date: 20141003
  Receipt Date: 20151116
  Transmission Date: 20160304
  Serious: Yes (Hospitalization)
  Sender: FDA-Public Use
  Company Number: US-JNJFOC-20141000778

PATIENT
  Age: 82 Year
  Sex: Female
  Weight: 45 kg

DRUGS (8)
  1. MULTIVITAMINS [Concomitant]
     Active Substance: VITAMINS
     Indication: SUPPLEMENTATION THERAPY
     Dosage: 1 DF
  2. IMBRUVICA [Suspect]
     Active Substance: IBRUTINIB
     Indication: CHRONIC LYMPHOCYTIC LEUKAEMIA
     Route: 065
     Dates: start: 20150514
  3. MAGNESIUM CHLORIDE. [Concomitant]
     Active Substance: MAGNESIUM CHLORIDE
     Indication: SUPPLEMENTATION THERAPY
     Dosage: 1 DF
  4. IMBRUVICA [Suspect]
     Active Substance: IBRUTINIB
     Indication: CHRONIC LYMPHOCYTIC LEUKAEMIA
     Route: 065
     Dates: start: 20140430, end: 20140812
  5. METOPROLOL [Concomitant]
     Active Substance: METOPROLOL
     Indication: ATRIAL FIBRILLATION
     Dosage: 12.5
     Dates: start: 2014
  6. ASCORBIC ACID W/RETINOL/TOCOPHEROL [Concomitant]
     Indication: EYE DISORDER
     Dosage: 1 DF
  7. ALLOPURINOL. [Concomitant]
     Active Substance: ALLOPURINOL
     Indication: BLOOD URIC ACID
     Dosage: 1 DF
     Dates: start: 2013
  8. ALLOPURINOL. [Concomitant]
     Active Substance: ALLOPURINOL
     Indication: RENAL DISORDER
     Dosage: 1 DF
     Dates: start: 2013

REACTIONS (22)
  - Burning sensation [Not Recovered/Not Resolved]
  - Blister [Recovered/Resolved]
  - Hypoaesthesia [Not Recovered/Not Resolved]
  - Atrial fibrillation [Unknown]
  - Gastrooesophageal reflux disease [Recovered/Resolved]
  - Haemorrhage [Recovered/Resolved]
  - Nerve injury [Not Recovered/Not Resolved]
  - Sternal fracture [Unknown]
  - Spinal cord haemorrhage [Recovered/Resolved]
  - Haemorrhage intracranial [Recovered/Resolved]
  - Chills [Recovered/Resolved]
  - Fall [Recovered/Resolved]
  - Weight decreased [Unknown]
  - Road traffic accident [Recovered/Resolved]
  - Hip fracture [Recovered/Resolved]
  - Visual acuity reduced [Unknown]
  - Swelling [Recovered/Resolved]
  - Diarrhoea [Recovered/Resolved]
  - Erythema [Not Recovered/Not Resolved]
  - Dysgeusia [Recovered/Resolved]
  - Contusion [Not Recovered/Not Resolved]
  - Fatigue [Recovering/Resolving]

NARRATIVE: CASE EVENT DATE: 2014
